FAERS Safety Report 6519642-2 (Version None)
Quarter: 2009Q4

REPORT INFORMATION
  Report Type: 
  Country: None (occurrence: None)
  Receive Date: 20091228
  Receipt Date: 20091222
  Transmission Date: 20100525
  Serious: Yes (Other)
  Sender: FDA-Public Use
  Company Number: JP-ALLERGAN-0916687US

PATIENT
  Age: 55 Year
  Sex: Female
  Weight: 64 kg

DRUGS (4)
  1. EPINASTINE HYDROCHLORIDE [Suspect]
     Indication: SEASONAL ALLERGY
     Dosage: 20 MG, QD
     Route: 048
     Dates: start: 20060901, end: 20091001
  2. MUCODYNE [Concomitant]
     Indication: EUSTACHIAN TUBE STENOSIS
     Dosage: 1500 MG, QD
     Route: 048
     Dates: start: 20090901
  3. SUMILU [Concomitant]
     Indication: OSTEOARTHRITIS
     Dosage: UNK
     Dates: start: 20090301
  4. ALLERMIST [Concomitant]
     Indication: EUSTACHIAN TUBE STENOSIS
     Dosage: 1 PUFF
     Route: 055

REACTIONS (1)
  - LIVER FUNCTION TEST ABNORMAL [None]
